FAERS Safety Report 19369948 (Version 1)
Quarter: 2021Q2

REPORT INFORMATION
  Report Type: Spontaneous
  Country: KR (occurrence: KR)
  Receive Date: 20210604
  Receipt Date: 20210604
  Transmission Date: 20210717
  Serious: Yes (Hospitalization)
  Sender: FDA-Public Use
  Company Number: KR-NOVOPROD-817537

PATIENT
  Sex: Male

DRUGS (2)
  1. NOVOSEVEN [Suspect]
     Active Substance: COAGULATION FACTOR VIIA RECOMBINANT HUMAN
     Indication: HAEMORRHAGE
     Dosage: 120 MCG/KG/DOSE Q 3 H
     Route: 042
  2. NOVOSEVEN [Suspect]
     Active Substance: COAGULATION FACTOR VIIA RECOMBINANT HUMAN
     Indication: FACTOR VIII DEFICIENCY
     Dosage: UNK
     Route: 042

REACTIONS (6)
  - Melaena [Recovered/Resolved]
  - Catheter site haematoma [Recovered/Resolved]
  - Haemarthrosis [Recovered/Resolved]
  - Loss of therapeutic response [Unknown]
  - Haemorrhage [Recovered/Resolved]
  - Injection site haemorrhage [Recovered/Resolved]
